FAERS Safety Report 25105648 (Version 1)
Quarter: 2025Q1

REPORT INFORMATION
  Report Type: Spontaneous
  Country: US (occurrence: US)
  Receive Date: 20250321
  Receipt Date: 20250321
  Transmission Date: 20250409
  Serious: No
  Sender: ESPERION THERAPEUTICS
  Company Number: US-ESPERIONTHERAPEUTICS-2024USA00661

PATIENT
  Age: 69 Year
  Sex: Female

DRUGS (6)
  1. NEXLETOL [Suspect]
     Active Substance: BEMPEDOIC ACID
     Indication: Blood cholesterol increased
     Dosage: 180 MILLIGRAM, QD
     Route: 048
     Dates: start: 202404
  2. OLMESARTAN [Concomitant]
     Active Substance: OLMESARTAN
     Dosage: 20 MILLIGRAM, QD
     Route: 065
  3. ADDERALL [Concomitant]
     Active Substance: AMPHETAMINE ASPARTATE\AMPHETAMINE SULFATE\DEXTROAMPHETAMINE SACCHARATE\DEXTROAMPHETAMINE SULFATE
  4. VITAMIN D [Concomitant]
     Active Substance: VITAMIN D NOS
     Route: 065
  5. VITAMIN B12 [Concomitant]
     Active Substance: CYANOCOBALAMIN
     Route: 065
  6. ASPIRIN [Concomitant]
     Active Substance: ASPIRIN
     Dosage: 81 MILLIGRAM, QD
     Route: 065

REACTIONS (5)
  - Pain [Not Recovered/Not Resolved]
  - Malaise [Not Recovered/Not Resolved]
  - Influenza like illness [Not Recovered/Not Resolved]
  - Bronchitis [Not Recovered/Not Resolved]
  - Back pain [Not Recovered/Not Resolved]

NARRATIVE: CASE EVENT DATE: 20240426
